FAERS Safety Report 7390220-9 (Version None)
Quarter: 2011Q2

REPORT INFORMATION
  Report Type: 
  Country: None (occurrence: None)
  Receive Date: 20110401
  Receipt Date: 20110328
  Transmission Date: 20111010
  Serious: No
  Sender: FDA-Public Use
  Company Number: US-TEVA-274016USA

PATIENT
  Sex: Female
  Weight: 68.1 kg

DRUGS (3)
  1. LORTAB [Concomitant]
     Indication: PROCEDURAL PAIN
     Route: 048
     Dates: start: 20110311
  2. LORTAB [Concomitant]
     Indication: POST PROCEDURAL SWELLING
  3. PLAN B ONE-STEP [Suspect]
     Indication: POST COITAL CONTRACEPTION
     Route: 048
     Dates: start: 20110316, end: 20110316

REACTIONS (2)
  - MENSTRUATION IRREGULAR [None]
  - BREAST PAIN [None]
